FAERS Safety Report 19845007 (Version 1)
Quarter: 2021Q3

REPORT INFORMATION
  Report Type: Spontaneous
  Country: FR (occurrence: FR)
  Receive Date: 20210917
  Receipt Date: 20210917
  Transmission Date: 20211014
  Serious: Yes (Life-Threatening, Hospitalization)
  Sender: FDA-Public Use
  Company Number: FR-ABBVIE-21K-056-4083311-00

PATIENT
  Age: 53 Year
  Sex: Male
  Weight: 49 kg

DRUGS (2)
  1. METHADONE [Concomitant]
     Active Substance: METHADONE HYDROCHLORIDE
     Indication: PRODUCT USED FOR UNKNOWN INDICATION
  2. DEPAKINE [Suspect]
     Active Substance: VALPROATE SODIUM
     Indication: SUICIDE ATTEMPT
     Dosage: 120 DF, UNK
     Route: 048
     Dates: start: 20180422, end: 20180422

REACTIONS (4)
  - Bradypnoea [Recovered/Resolved]
  - Encephalopathy [Recovered/Resolved]
  - Pancytopenia [Recovered/Resolved]
  - Miosis [Recovered/Resolved]

NARRATIVE: CASE EVENT DATE: 20180422
